FAERS Safety Report 6133312-4 (Version None)
Quarter: 2009Q1

REPORT INFORMATION
  Report Type: 
  Country: None (occurrence: None)
  Receive Date: 20090325
  Receipt Date: 20090325
  Transmission Date: 20090719
  Serious: No
  Sender: FDA-Public Use
  Company Number: None

PATIENT
  Sex: Female

DRUGS (1)
  1. SIMVASTATIN [Suspect]
     Dosage: 1 TABLET AT BEDTIME PO
     Route: 048
     Dates: start: 20081121, end: 20081204

REACTIONS (1)
  - MYALGIA [None]
